FAERS Safety Report 14084045 (Version 1)
Quarter: 2017Q4

REPORT INFORMATION
  Report Type: Spontaneous
  Country: FR (occurrence: FR)
  Receive Date: 20171013
  Receipt Date: 20171013
  Transmission Date: 20180321
  Serious: Yes (Hospitalization)
  Sender: FDA-Public Use
  Company Number: FR-ORION CORPORATION ORION PHARMA-TREX2017-3121

PATIENT
  Age: 28 Year
  Sex: Female

DRUGS (4)
  1. IMETH [Suspect]
     Active Substance: METHOTREXATE SODIUM
     Route: 065
     Dates: end: 2014
  2. IMETH [Suspect]
     Active Substance: METHOTREXATE SODIUM
     Route: 065
     Dates: start: 2010
  3. IMETH [Suspect]
     Active Substance: METHOTREXATE SODIUM
     Route: 065
  4. IMETH [Suspect]
     Active Substance: METHOTREXATE SODIUM
     Route: 065

REACTIONS (3)
  - Appendicitis [Recovered/Resolved]
  - Peritonitis [Unknown]
  - Endometriosis [Unknown]

NARRATIVE: CASE EVENT DATE: 2014
